FAERS Safety Report 20921836 (Version 1)
Quarter: 2022Q2

REPORT INFORMATION
  Report Type: Other
  Country: AU (occurrence: AU)
  Receive Date: 20220606
  Receipt Date: 20220606
  Transmission Date: 20220720
  Serious: Yes (Hospitalization)
  Sender: FDA-Public Use
  Company Number: AU-TOLMAR, INC.-21AU031141

PATIENT
  Age: 70 Year
  Sex: Male
  Weight: 89 kg

DRUGS (7)
  1. ELIGARD [Suspect]
     Active Substance: LEUPROLIDE ACETATE
     Indication: Prostate cancer
     Dosage: 22.5 MILLIGRAM, Q 3 MONTH
     Route: 058
     Dates: start: 20170731
  2. ELIGARD [Suspect]
     Active Substance: LEUPROLIDE ACETATE
     Dosage: 22.5 MILLIGRAM, Q 3 MONTH
     Route: 058
     Dates: start: 20210628
  3. ENZALUTAMIDE [Suspect]
     Active Substance: ENZALUTAMIDE
     Indication: Prostate cancer
     Dosage: UNK, Q 3 MONTH
     Route: 048
     Dates: start: 20210801
  4. ENZALUTAMIDE [Suspect]
     Active Substance: ENZALUTAMIDE
     Dosage: UNK, Q 3 MONTH
     Route: 048
     Dates: start: 20211013
  5. PREDNISOLONE [Concomitant]
     Active Substance: PREDNISOLONE
     Indication: Prophylaxis
     Dosage: UNK
     Dates: start: 20170718
  6. PHENERGAN AND CHLORAL HYDRATE [Concomitant]
     Indication: Prophylaxis
     Dosage: UNK
     Dates: start: 20170719
  7. CIMETIDINE [Concomitant]
     Active Substance: CIMETIDINE
     Indication: Allergy prophylaxis
     Dosage: UNK
     Dates: start: 20170719

REACTIONS (1)
  - Chest pain [Recovered/Resolved with Sequelae]

NARRATIVE: CASE EVENT DATE: 20211014
